FAERS Safety Report 21962883 (Version 1)
Quarter: 2023Q1

REPORT INFORMATION
  Report Type: Spontaneous
  Country: US (occurrence: US)
  Receive Date: 20230207
  Receipt Date: 20230207
  Transmission Date: 20230417
  Serious: Yes (Other)
  Sender: FDA-Public Use
  Company Number: US-SAMSUNG BIOEPIS-SB-2023-03235

PATIENT
  Age: 35 Year
  Sex: Female

DRUGS (9)
  1. INFLIXIMAB [Suspect]
     Active Substance: INFLIXIMAB
     Indication: Metastatic cutaneous Crohn^s disease
     Dosage: UNKNOWN
     Route: 065
  2. ADALIMUMAB [Suspect]
     Active Substance: ADALIMUMAB
     Indication: Metastatic cutaneous Crohn^s disease
     Dosage: UNKNOWN
     Route: 065
  3. USTEKINUMAB [Concomitant]
     Active Substance: USTEKINUMAB
     Indication: Metastatic cutaneous Crohn^s disease
     Dosage: MAINTAINED AT THE STANDARD CD DOSE
     Route: 065
  4. USTEKINUMAB [Concomitant]
     Active Substance: USTEKINUMAB
     Dosage: FREQUENCY WAS INCREASED
     Route: 065
  5. SILVER SULFADIAZINE [Concomitant]
     Active Substance: SILVER SULFADIAZINE
     Indication: Metastatic cutaneous Crohn^s disease
     Dosage: UNKNOWN
     Route: 065
  6. METRONIDAZOLE [Concomitant]
     Active Substance: METRONIDAZOLE
     Indication: Metastatic cutaneous Crohn^s disease
     Dosage: UNKNOWN
     Route: 048
  7. CIPROFLOXACIN [Concomitant]
     Active Substance: CIPROFLOXACIN
     Indication: Metastatic cutaneous Crohn^s disease
     Dosage: UNKNOWN
     Route: 048
  8. RIFAXIMIN [Concomitant]
     Active Substance: RIFAXIMIN
     Indication: Metastatic cutaneous Crohn^s disease
     Dosage: UNKNOWN
     Route: 065
  9. RIFABUTIN [Concomitant]
     Active Substance: RIFABUTIN
     Indication: Metastatic cutaneous Crohn^s disease
     Dosage: UNKNOWN
     Route: 065

REACTIONS (5)
  - Metastatic cutaneous Crohn^s disease [Recovered/Resolved]
  - Lupus-like syndrome [Unknown]
  - Latent tuberculosis [Unknown]
  - Drug ineffective for unapproved indication [Unknown]
  - Off label use [Unknown]
